FAERS Safety Report 21282961 (Version 1)
Quarter: 2022Q3

REPORT INFORMATION
  Report Type: Report from Study
  Country: US (occurrence: US)
  Receive Date: 20220901
  Receipt Date: 20220901
  Transmission Date: 20221027
  Serious: Yes (Hospitalization, Other)
  Sender: FDA-Public Use
  Company Number: US-TAKEDA-2022TUS059511

PATIENT
  Age: 79 Year
  Sex: Female

DRUGS (2)
  1. HUMAN IMMUNOGLOBULIN G [Suspect]
     Active Substance: HUMAN IMMUNOGLOBULIN G
     Indication: Primary immunodeficiency syndrome
     Dosage: 45 GRAM
     Route: 042
  2. OCTAGAM IMMUNE GLOBULIN (HUMAN) [Suspect]
     Active Substance: HUMAN IMMUNOGLOBULIN G
     Indication: Primary immunodeficiency syndrome
     Dosage: 45 GRAM
     Route: 065

REACTIONS (6)
  - Pneumonia [Unknown]
  - Basal cell carcinoma [Unknown]
  - Delusion [Unknown]
  - Blood calcium increased [Unknown]
  - Renal disorder [Unknown]
  - Poor venous access [Unknown]

NARRATIVE: CASE EVENT DATE: 20220825
